FAERS Safety Report 11908939 (Version 4)
Quarter: 2016Q2

REPORT INFORMATION
  Report Type: Spontaneous
  Country: US (occurrence: US)
  Receive Date: 20160111
  Receipt Date: 20160404
  Transmission Date: 20160815
  Serious: Yes (Other)
  Sender: FDA-Public Use
  Company Number: US-TEVA-621723USA

PATIENT
  Age: 42 Year
  Sex: Female

DRUGS (1)
  1. ZECUITY [Suspect]
     Active Substance: SUMATRIPTAN SUCCINATE
     Dosage: 6.5 MG / 4 HOURS
     Route: 062
     Dates: start: 201511, end: 20151220

REACTIONS (7)
  - Application site erythema [Recovered/Resolved]
  - Product adhesion issue [Recovered/Resolved]
  - Skin exfoliation [Unknown]
  - Application site burn [Recovered/Resolved]
  - Application site pain [Recovered/Resolved]
  - Application site warmth [Recovered/Resolved]
  - Skin warm [Unknown]

NARRATIVE: CASE EVENT DATE: 201511
